FAERS Safety Report 8954719 (Version 1)
Quarter: 2012Q4

REPORT INFORMATION
  Report Type: Spontaneous
  Country: US (occurrence: None)
  Receive Date: 20121205
  Receipt Date: 20121205
  Transmission Date: 20130627
  Serious: Yes (Other)
  Sender: FDA-Public Use
  Company Number: None

PATIENT
  Age: 68 Year
  Sex: Female
  Weight: 63.96 kg

DRUGS (1)
  1. RECLAST [Suspect]
     Indication: OSTEOPOROSIS
     Dosage: 1 x year
     Dates: start: 20121101

REACTIONS (5)
  - Back pain [None]
  - Crying [None]
  - Pain in extremity [None]
  - Pain in extremity [None]
  - Middle insomnia [None]
